FAERS Safety Report 18743883 (Version 1)
Quarter: 2021Q1

REPORT INFORMATION
  Report Type: Spontaneous
  Country: IT (occurrence: IT)
  Receive Date: 20210115
  Receipt Date: 20210115
  Transmission Date: 20210419
  Serious: Yes (Other)
  Sender: FDA-Public Use
  Company Number: IT-AMGEN-ITASP2021005802

PATIENT
  Age: 30 Year
  Sex: Male

DRUGS (4)
  1. CYCLOSPORINE. [Suspect]
     Active Substance: CYCLOSPORINE
     Indication: ERYTHRODERMIC PSORIASIS
     Dosage: 150?200 MG/DAY
     Route: 065
  2. ACITRETIN. [Suspect]
     Active Substance: ACITRETIN
     Indication: ERYTHRODERMIC PSORIASIS
     Dosage: 25 MG, QD
     Route: 065
  3. PREDNISONE. [Suspect]
     Active Substance: PREDNISONE
     Indication: ERYTHRODERMIC PSORIASIS
     Dosage: 25 MG
     Route: 048
  4. ENBREL [Suspect]
     Active Substance: ETANERCEPT
     Indication: ERYTHRODERMIC PSORIASIS
     Dosage: 50 MG, Q WEEK
     Route: 065

REACTIONS (4)
  - Cushing^s syndrome [Recovering/Resolving]
  - Dyslipidaemia [Recovering/Resolving]
  - Psoriasis [Recovered/Resolved]
  - Hepatic enzyme increased [Recovering/Resolving]
